FAERS Safety Report 4554593-4 (Version None)
Quarter: 2005Q1

REPORT INFORMATION
  Report Type: 
  Country: None (occurrence: None)
  Receive Date: 20041227
  Receipt Date: 20040921
  Transmission Date: 20050727
  Serious: Yes (Hospitalization)
  Sender: FDA-Public Use
  Company Number: US092395

PATIENT
  Age: 75 Year
  Sex: Female
  Weight: 59.5 kg

DRUGS (6)
  1. ARANESP [Suspect]
     Indication: ANAEMIA OF MALIGNANT DISEASE
     Dosage: 200 MCG, SC
     Route: 058
     Dates: start: 20040726
  2. CT-2103 [Suspect]
     Indication: NON-SMALL CELL LUNG CANCER
     Dosage: 344 MG, 1 IN 3 WEEKS, IV
     Route: 042
     Dates: start: 20040726, end: 20040816
  3. ESTRADIOL [Suspect]
     Dosage: 0.5 MG, 1 IN 3 WEEKS, IV
     Route: 042
     Dates: start: 20030501, end: 20040820
  4. CARBOPLATIN [Suspect]
     Indication: NON-SMALL CELL LUNG CANCER
     Dosage: 498 MG, 1 IN 3 WEEKS, IV
     Route: 042
     Dates: start: 20040726, end: 20040816
  5. LEVOTHYROXINE SODIUM [Concomitant]
  6. TIMOLOL MALEATE [Concomitant]

REACTIONS (3)
  - DIARRHOEA [None]
  - NAUSEA [None]
  - PULMONARY EMBOLISM [None]
